FAERS Safety Report 5170085-6 (Version None)
Quarter: 2006Q4

REPORT INFORMATION
  Report Type: 
  Country: None (occurrence: None)
  Receive Date: 20061201
  Receipt Date: 20061116
  Transmission Date: 20070319
  Serious: Yes (Death, Life-Threatening)
  Sender: FDA-Public Use
  Company Number: US-2006-035800

PATIENT
  Age: 66 Year
  Sex: Male

DRUGS (8)
  1. CAMPATH [Suspect]
     Indication: LIVER TRANSPLANT
     Dosage: SEE IMAGE
     Route: 042
     Dates: start: 20050802, end: 20050802
  2. CAMPATH [Suspect]
     Indication: LIVER TRANSPLANT
     Dosage: SEE IMAGE
     Route: 042
     Dates: start: 20050806, end: 20050806
  3. TACROLIMUS (TACROLIMUS) [Suspect]
     Indication: PROPHYLAXIS AGAINST TRANSPLANT REJECTION
     Dosage: 1 MG,2X/DAY, ORAL
     Route: 048
     Dates: start: 20050803
  4. ATROVENT [Concomitant]
  5. PRILOSEC [Concomitant]
  6. COMBIVENT /GFR/ (IPRATROPIUM BROMIDE) [Concomitant]
  7. AMIODARONE [Concomitant]
  8. DAPSONE [Concomitant]

REACTIONS (37)
  - ABDOMINAL DISCOMFORT [None]
  - ACUTE RESPIRATORY FAILURE [None]
  - ANAEMIA [None]
  - ASTHENIA [None]
  - BLOOD CHLORIDE DECREASED [None]
  - BLOOD GLUCOSE INCREASED [None]
  - BLOOD POTASSIUM INCREASED [None]
  - BLOOD PRESSURE DIASTOLIC DECREASED [None]
  - CLOSTRIDIUM DIFFICILE COLITIS [None]
  - CONDITION AGGRAVATED [None]
  - CONFUSIONAL STATE [None]
  - DEHYDRATION [None]
  - DIZZINESS [None]
  - ENTEROCOCCAL INFECTION [None]
  - FEMUR FRACTURE [None]
  - HAEMATOCRIT DECREASED [None]
  - HAEMOGLOBIN DECREASED [None]
  - HYPOTENSION [None]
  - INFLUENZA SEROLOGY POSITIVE [None]
  - LEUKOCYTOSIS [None]
  - LEUKOPENIA [None]
  - LOSS OF CONSCIOUSNESS [None]
  - LUNG NEOPLASM [None]
  - LYMPHOPENIA [None]
  - NEISSERIA INFECTION [None]
  - NEUTROPENIA [None]
  - PARASITE STOOL TEST POSITIVE [None]
  - PLATELET COUNT DECREASED [None]
  - PLEURAL EFFUSION [None]
  - PSEUDOMONAS INFECTION [None]
  - PULMONARY ARTERIAL PRESSURE INCREASED [None]
  - PYREXIA [None]
  - RESPIRATORY DISTRESS [None]
  - RESTRICTIVE PULMONARY DISEASE [None]
  - SEPTIC EMBOLUS [None]
  - SUPRAVENTRICULAR TACHYCARDIA [None]
  - VOMITING [None]
